FAERS Safety Report 5937226-1 (Version None)
Quarter: 2008Q4

REPORT INFORMATION
  Report Type: 
  Country: None (occurrence: None)
  Receive Date: 20081031
  Receipt Date: 20081027
  Transmission Date: 20090506
  Serious: Yes (Hospitalization)
  Sender: FDA-Public Use
  Company Number: JP-NOVOPROD-279355

PATIENT
  Age: 15 Year
  Sex: Male
  Weight: 31 kg

DRUGS (7)
  1. NORDITROPIN NORDIFLEX [Suspect]
     Indication: GROWTH HORMONE DEFICIENCY
     Dosage: 0.8 MG, QD
     Route: 058
     Dates: start: 20080208
  2. LASIX [Concomitant]
     Indication: UNIVENTRICULAR HEART
     Dosage: 30 MG, QD
     Route: 048
  3. ALDACTONE [Concomitant]
     Indication: UNIVENTRICULAR HEART
     Dosage: 75 MG, QD
     Route: 048
  4. DORNER [Concomitant]
     Indication: UNIVENTRICULAR HEART
     Dosage: 60 UG, QD
     Route: 048
  5. RENIVACE [Concomitant]
     Indication: UNIVENTRICULAR HEART
     Dosage: 2.5 MG, QD
     Route: 048
  6. GASTER                             /00661201/ [Concomitant]
     Indication: GASTROINTESTINAL HAEMORRHAGE
     Dosage: 20 MG, QD
     Route: 048
     Dates: start: 20080901
  7. ZYLORIC                            /00003301/ [Concomitant]
     Indication: HYPERURICAEMIA
     Dosage: 200 MG, QD
     Route: 048
     Dates: start: 20080919

REACTIONS (3)
  - BLOOD CREATININE INCREASED [None]
  - BLOOD UREA INCREASED [None]
  - GASTROINTESTINAL HAEMORRHAGE [None]
